FAERS Safety Report 8287560-8 (Version None)
Quarter: 2012Q2

REPORT INFORMATION
  Report Type: 
  Country: None (occurrence: None)
  Receive Date: 20120416
  Receipt Date: 20120404
  Transmission Date: 20120825
  Serious: Yes (Other)
  Sender: FDA-Public Use
  Company Number: PHHY2012JP029301

PATIENT
  Sex: Male

DRUGS (1)
  1. RASILEZ [Suspect]
     Dosage: 150 MG
     Route: 048

REACTIONS (3)
  - GYNAECOMASTIA [None]
  - BREAST CANCER [None]
  - BREAST CANCER MALE [None]
